FAERS Safety Report 11267691 (Version 1)
Quarter: 2015Q3

REPORT INFORMATION
  Report Type: Spontaneous
  Country: US (occurrence: US)
  Receive Date: 20150713
  Receipt Date: 20150713
  Transmission Date: 20151125
  Serious: Yes (Death, Hospitalization)
  Sender: FDA-Public Use
  Company Number: US-MPIJNJ-2013MPI000746

PATIENT
  Age: 80 Year
  Sex: Male

DRUGS (1)
  1. VELCADE [Suspect]
     Active Substance: BORTEZOMIB
     Indication: AMYLOIDOSIS
     Dosage: 1.0 MG/M2, 1/WEEK
     Route: 058
     Dates: start: 20130913, end: 20131004

REACTIONS (2)
  - Pseudomonas infection [Fatal]
  - Product use issue [Unknown]

NARRATIVE: CASE EVENT DATE: 20131012
